FAERS Safety Report 20130376 (Version 1)
Quarter: 2021Q4

REPORT INFORMATION
  Report Type: Spontaneous
  Country: US (occurrence: US)
  Receive Date: 20211130
  Receipt Date: 20211130
  Transmission Date: 20220303
  Serious: No
  Sender: FDA-Public Use
  Company Number: US-GALDERMA-US2021018276

PATIENT

DRUGS (5)
  1. PROACTIV MD ADAPALENE ACNE TREATMENT [Suspect]
     Active Substance: ADAPALENE
     Indication: Acne cystic
     Dosage: 1 DOSAGE FORM, QD, ONE TIME AT NIGHT
     Route: 061
     Dates: start: 20210907, end: 20211025
  2. PROACTIV MD DAILY OIL CONTROL SPF 30 [Suspect]
     Active Substance: AVOBENZONE\OCTISALATE\OCTOCRYLENE
     Indication: Acne cystic
     Dosage: 1 DOSAGE FORM, BID, CUTANEOUS SOLUTION, 2 OR MORE TIMES A DAY
     Route: 061
     Dates: start: 20210907, end: 20211025
  3. Proactiv MD Ultra Gentle Cleanser [Concomitant]
     Indication: Acne cystic
     Dosage: 1 DOSAGE FORM, BID, 2 OR MORE TIMES A DAY
     Route: 061
     Dates: start: 20210907, end: 20211025
  4. Proactiv MD Ultra Hydrating Moisturizer [Concomitant]
     Indication: Acne cystic
     Dosage: 1 DOSAGE FORM, BID, 2 OR MORE TIMES A DAY
     Route: 061
     Dates: start: 20210907, end: 20211025
  5. Proactiv Post Acne Scar Gel [Concomitant]
     Indication: Acne cystic
     Dosage: 1 DOSAGE FORM, BID, 2 OR MORE TIMES A DAY
     Route: 061
     Dates: start: 20210907, end: 20211025

REACTIONS (3)
  - Acne cystic [Not Recovered/Not Resolved]
  - Condition aggravated [Not Recovered/Not Resolved]
  - Product use in unapproved indication [Recovered/Resolved]

NARRATIVE: CASE EVENT DATE: 20210907
